FAERS Safety Report 19834522 (Version 1)
Quarter: 2021Q3

REPORT INFORMATION
  Report Type: Spontaneous
  Country: US (occurrence: US)
  Receive Date: 20210915
  Receipt Date: 20210915
  Transmission Date: 20211014
  Serious: No
  Sender: FDA-Public Use
  Company Number: US-ASTRAZENECA-2021A706910

PATIENT
  Age: 29519 Day
  Sex: Female
  Weight: 83.9 kg

DRUGS (2)
  1. SYMBICORT [Suspect]
     Active Substance: BUDESONIDE\FORMOTEROL FUMARATE DIHYDRATE
     Indication: CHRONIC OBSTRUCTIVE PULMONARY DISEASE
     Dosage: 160/4.5 MCG 2 PUFFS TWO TIMES A DAY
     Route: 055
  2. INSULIN [Concomitant]
     Active Substance: INSULIN NOS

REACTIONS (4)
  - Memory impairment [Not Recovered/Not Resolved]
  - Incorrect dose administered by device [Unknown]
  - Device breakage [Unknown]
  - Device use issue [Unknown]

NARRATIVE: CASE EVENT DATE: 20210829
